FAERS Safety Report 11833624 (Version 2)
Quarter: 2016Q1

REPORT INFORMATION
  Report Type: Report from Study
  Country: DK (occurrence: DK)
  Receive Date: 20151214
  Receipt Date: 20160125
  Transmission Date: 20160525
  Serious: Yes (Hospitalization)
  Sender: FDA-Public Use
  Company Number: DK-BAXALTA-2015BLT003213

PATIENT
  Age: 71 Year
  Sex: Female
  Weight: 71.3 kg

DRUGS (8)
  1. BRICANYL [Concomitant]
     Active Substance: TERBUTALINE SULFATE
     Indication: CHRONIC OBSTRUCTIVE PULMONARY DISEASE
     Dosage: 0.5 MG, AS NEEDED
     Route: 055
     Dates: start: 20120301
  2. SYMBICORT [Concomitant]
     Active Substance: BUDESONIDE\FORMOTEROL FUMARATE DIHYDRATE
     Indication: CHRONIC OBSTRUCTIVE PULMONARY DISEASE
     Dosage: 329 UG, 2X A DAY
     Route: 055
     Dates: start: 20140527
  3. BIOCLAVID [Concomitant]
     Active Substance: AMOXICILLIN\CLAVULANIC ACID
     Indication: INFECTION
     Dosage: 625 MG, 3X A DAY
     Route: 048
     Dates: start: 20150126, end: 20150205
  4. HYQVIA [Suspect]
     Active Substance: HUMAN IMMUNOGLOBULIN G\HYALURONIDASE RECOMBINANT HUMAN
     Indication: IMMUNODEFICIENCY
     Dosage: 300 ML IG, ONCE
     Route: 058
     Dates: start: 20150123, end: 20150123
  5. SPIRIVA [Concomitant]
     Active Substance: TIOTROPIUM BROMIDE MONOHYDRATE
     Indication: CHRONIC OBSTRUCTIVE PULMONARY DISEASE
     Dosage: 18 UG, 1X A DAY
     Route: 055
     Dates: start: 20130627
  6. AZITHROMYCIN ANHYDROUS. [Concomitant]
     Active Substance: AZITHROMYCIN ANHYDROUS
     Indication: PROPHYLAXIS
     Dosage: 500 MG, 2X A DAY
     Route: 048
     Dates: start: 20141010
  7. CALCIUM W/COLECALCIFEROL [Concomitant]
     Active Substance: CALCIUM\CHOLECALCIFEROL
     Indication: PROPHYLAXIS
     Dosage: 400 MG, 2X A DAY
     Route: 048
     Dates: start: 20130427
  8. VITAMINERAL [Concomitant]
     Indication: PROPHYLAXIS
     Dosage: 1 TABLET, 1X A DAY
     Route: 048
     Dates: start: 20140429

REACTIONS (1)
  - Chronic obstructive pulmonary disease [Recovered/Resolved]

NARRATIVE: CASE EVENT DATE: 20150216
